FAERS Safety Report 4280050-9 (Version None)
Quarter: 2004Q1

REPORT INFORMATION
  Report Type: 
  Country: None (occurrence: None)
  Receive Date: 20040126
  Receipt Date: 20040116
  Transmission Date: 20041129
  Serious: Yes (Death)
  Sender: FDA-Public Use
  Company Number: 2004-01-0966

PATIENT
  Age: 40 Year
  Sex: Male

DRUGS (2)
  1. INTEFERON ALFA-2B INJECTABLE SOLUTION [Suspect]
     Indication: HEPATITIS C
     Dosage: SUBCUTANEOUS
     Route: 058
     Dates: end: 20000101
  2. RIBAVIRIN [Suspect]
     Indication: HEPATITIS C
     Dosage: ORAL
     Route: 048
     Dates: end: 20000101

REACTIONS (1)
  - ADENOCARCINOMA [None]
